FAERS Safety Report 4473738-8 (Version None)
Quarter: 2004Q4

REPORT INFORMATION
  Report Type: 
  Country: None (occurrence: None)
  Receive Date: 20040907
  Receipt Date: 20031013
  Transmission Date: 20050328
  Serious: Yes (Hospitalization)
  Sender: FDA-Public Use
  Company Number: PHEH2003US09391

PATIENT
  Age: 8 Year
  Sex: Female

DRUGS (1)
  1. NEORAL [Suspect]
     Indication: TRANSPLANT
     Dosage: 0.6 MG ; 1 MG  :  BID, ORAL
     Route: 048
     Dates: start: 20030917

REACTIONS (2)
  - DRUG LEVEL DECREASED [None]
  - FULL BLOOD COUNT ABNORMAL [None]
